FAERS Safety Report 16076153 (Version 5)
Quarter: 2020Q1

REPORT INFORMATION
  Report Type: Spontaneous
  Country: CA (occurrence: CA)
  Receive Date: 20190315
  Receipt Date: 20200217
  Transmission Date: 20200409
  Serious: Yes (Other)
  Sender: FDA-Public Use
  Company Number: CA-AUROBINDO-AUR-APL-2019-012830

PATIENT
  Age: 51 Year
  Sex: Female

DRUGS (26)
  1. CHOLESTAGEL [Suspect]
     Active Substance: COLESEVELAM HYDROCHLORIDE
     Indication: TYPE IIA HYPERLIPIDAEMIA
     Dosage: UNK
     Route: 065
  2. LODALIS [Suspect]
     Active Substance: COLESEVELAM HYDROCHLORIDE
     Indication: TYPE IIA HYPERLIPIDAEMIA
     Dosage: UNK
     Route: 065
  3. EVOLOCUMAB [Suspect]
     Active Substance: EVOLOCUMAB
     Indication: TYPE IIA HYPERLIPIDAEMIA
  4. REPATHA [Suspect]
     Active Substance: EVOLOCUMAB
     Indication: TYPE IIA HYPERLIPIDAEMIA
  5. ATORVASTATIN TABLETS [Suspect]
     Active Substance: ATORVASTATIN
     Indication: XANTHOMA
     Dosage: UNK
     Route: 065
  6. EVOLOCUMAB [Suspect]
     Active Substance: EVOLOCUMAB
     Indication: TYPE IIA HYPERLIPIDAEMIA
  7. REPATHA [Suspect]
     Active Substance: EVOLOCUMAB
     Indication: XANTHOMA
     Dosage: UNK
     Route: 065
  8. ATORVASTATIN TABLETS [Suspect]
     Active Substance: ATORVASTATIN
     Indication: TYPE IIA HYPERLIPIDAEMIA
  9. EZETIMIBE TABLETS [Suspect]
     Active Substance: EZETIMIBE
     Indication: TYPE IIA HYPERLIPIDAEMIA
     Dosage: UNK
     Route: 065
  10. LODALIS [Suspect]
     Active Substance: COLESEVELAM HYDROCHLORIDE
     Indication: XANTHOMA
  11. REPATHA [Suspect]
     Active Substance: EVOLOCUMAB
     Indication: TYPE IIA HYPERLIPIDAEMIA
     Dosage: 140 MILLIGRAM, 1 EVERY 2 WEEK
     Route: 058
  12. PRAVASTATIN. [Suspect]
     Active Substance: PRAVASTATIN
     Indication: XANTHOMA
     Dosage: 10 MILLIGRAM
     Route: 065
  13. ROSUVASTATIN TABLET [Suspect]
     Active Substance: ROSUVASTATIN
     Indication: TYPE IIA HYPERLIPIDAEMIA
     Dosage: 10 MILLIGRAM, TWO TIMES A DAY
     Route: 048
  14. LODALIS [Suspect]
     Active Substance: COLESEVELAM HYDROCHLORIDE
     Indication: TYPE IIA HYPERLIPIDAEMIA
     Dosage: UNK
     Route: 065
  15. EVOLOCUMAB [Suspect]
     Active Substance: EVOLOCUMAB
     Indication: XANTHOMA
     Dosage: 140 MILLIGRAM
     Route: 058
  16. ROSUVASTATIN. [Suspect]
     Active Substance: ROSUVASTATIN
     Indication: XANTHOMA
     Dosage: 10 MILLIGRAM, TWO TIMES A DAY
     Route: 048
  17. EVOLOCUMAB [Suspect]
     Active Substance: EVOLOCUMAB
     Indication: XANTHOMA
     Dosage: UNK
     Route: 065
  18. EZETIMIBE TABLETS [Suspect]
     Active Substance: EZETIMIBE
     Indication: XANTHOMA
     Dosage: 10 MILLIGRAM
     Route: 065
  19. ROSUVASTATIN TABLET [Suspect]
     Active Substance: ROSUVASTATIN
     Dosage: 10 MILLIGRAM, TWO EVERY TWO DAYS
     Route: 065
  20. ROSUVASTATIN. [Suspect]
     Active Substance: ROSUVASTATIN
     Dosage: 10 MILLIGRAM, TWO TIMES A DAY
     Route: 065
  21. ROSUVASTATIN TABLET [Suspect]
     Active Substance: ROSUVASTATIN
     Indication: XANTHOMA
     Dosage: 10 MILLIGRAM, ONCE IN EVERY TWO WEEK
     Route: 048
  22. ROSUVASTATIN. [Suspect]
     Active Substance: ROSUVASTATIN
     Indication: TYPE IIA HYPERLIPIDAEMIA
     Dosage: 10 MILLIGRAM, ONCE A DAY
     Route: 065
  23. LODALIS [Suspect]
     Active Substance: COLESEVELAM HYDROCHLORIDE
     Indication: XANTHOMA
  24. PRAVASTATIN. [Suspect]
     Active Substance: PRAVASTATIN
     Indication: TYPE IIA HYPERLIPIDAEMIA
  25. PRAVASTATIN TABLET [Suspect]
     Active Substance: PRAVASTATIN
     Indication: XANTHOMA
     Dosage: 10 MILLIGRAM
     Route: 065
  26. PRAVASTATIN TABLET [Suspect]
     Active Substance: PRAVASTATIN
     Indication: TYPE IIA HYPERLIPIDAEMIA

REACTIONS (2)
  - Drug ineffective [Unknown]
  - Drug intolerance [Unknown]
